APPROVED DRUG PRODUCT: PRIALT
Active Ingredient: ZICONOTIDE ACETATE
Strength: 500MCG/20ML (25MCG/ML)
Dosage Form/Route: INJECTABLE;INTRATHECAL
Application: N021060 | Product #001
Applicant: TERSERA THERAPEUTICS LLC
Approved: Dec 28, 2004 | RLD: Yes | RS: Yes | Type: RX